FAERS Safety Report 10460098 (Version 3)
Quarter: 2014Q3

REPORT INFORMATION
  Report Type: Report from Study
  Country: CA (occurrence: CA)
  Receive Date: 20140917
  Receipt Date: 20140929
  Transmission Date: 20150326
  Serious: Yes (Hospitalization, Disabling, Other)
  Sender: FDA-Public Use
  Company Number: CA-ABBVIE-14K-028-1283003-00

PATIENT
  Age: 45 Year
  Sex: Female
  Weight: 74 kg

DRUGS (3)
  1. METHOTREXATE [Concomitant]
     Active Substance: METHOTREXATE
     Indication: CROHN^S DISEASE
     Dates: start: 20121001
  2. HUMIRA [Suspect]
     Active Substance: ADALIMUMAB
     Indication: CROHN^S DISEASE
     Route: 058
     Dates: start: 20101205
  3. PREDNISONE. [Concomitant]
     Active Substance: PREDNISONE
     Indication: CROHN^S DISEASE
     Dates: start: 20140408, end: 20140704

REACTIONS (6)
  - Intestinal anastomosis [Unknown]
  - Adhesion [Unknown]
  - Intestinal mucosal hypertrophy [Unknown]
  - Anal fissure [Not Recovered/Not Resolved]
  - Intestinal obstruction [Recovering/Resolving]
  - Intestinal stenosis [Unknown]

NARRATIVE: CASE EVENT DATE: 20140101
